FAERS Safety Report 9389985 (Version 1)
Quarter: 2013Q3

REPORT INFORMATION
  Report Type: Spontaneous
  Country: US (occurrence: US)
  Receive Date: 20130708
  Receipt Date: 20130708
  Transmission Date: 20140515
  Serious: No
  Sender: FDA-Public Use
  Company Number: US-AMGEN-USASP2013044735

PATIENT
  Age: 30 Year
  Sex: Male

DRUGS (2)
  1. ENBREL [Suspect]
     Indication: PSORIASIS
     Dosage: 50 MG, TWICE WEEKLY
     Route: 065
     Dates: start: 20130401
  2. ENBREL [Suspect]
     Indication: PSORIATIC ARTHROPATHY

REACTIONS (5)
  - Dysphonia [Not Recovered/Not Resolved]
  - Aphonia [Not Recovered/Not Resolved]
  - Increased upper airway secretion [Not Recovered/Not Resolved]
  - Hyperhidrosis [Recovered/Resolved]
  - Lymphadenopathy [Not Recovered/Not Resolved]
